FAERS Safety Report 15298848 (Version 1)
Quarter: 2018Q3

REPORT INFORMATION
  Report Type: Spontaneous
  Country: IL (occurrence: IL)
  Receive Date: 20180821
  Receipt Date: 20180821
  Transmission Date: 20181010
  Serious: Yes (Death, Other)
  Sender: FDA-Public Use
  Company Number: IL-ROCHE-2172156

PATIENT
  Age: 60 Year
  Sex: Male

DRUGS (1)
  1. TECENTRIQ [Suspect]
     Active Substance: ATEZOLIZUMAB
     Indication: NON-SMALL CELL LUNG CANCER
     Dosage: 30/JUL/2018, HE RECEIVED ATEZOLIZUMAB
     Route: 065

REACTIONS (2)
  - Tumour lysis syndrome [Not Recovered/Not Resolved]
  - Acute hepatic failure [Fatal]

NARRATIVE: CASE EVENT DATE: 201808
